FAERS Safety Report 6547792-3 (Version None)
Quarter: 2010Q1

REPORT INFORMATION
  Report Type: 
  Country: None (occurrence: None)
  Receive Date: 20100124
  Receipt Date: 20091007
  Transmission Date: 20100710
  Serious: No
  Sender: FDA-Public Use
  Company Number: DE-ALEXION-A200900823

PATIENT

DRUGS (2)
  1. SOLIRIS [Suspect]
     Indication: PAROXYSMAL NOCTURNAL HAEMOGLOBINURIA
     Dosage: 600 MG, ACCORDING TO SPC
     Route: 042
     Dates: start: 20080529
  2. SOLIRIS [Suspect]
     Dosage: 900 MG, ACCORDING TO SPC
     Route: 042

REACTIONS (2)
  - GASTROINTESTINAL INFECTION [None]
  - HAEMOLYSIS [None]
